FAERS Safety Report 6298300-6 (Version None)
Quarter: 2009Q3

REPORT INFORMATION
  Report Type: 
  Country: None (occurrence: None)
  Receive Date: 20090805
  Receipt Date: 20090727
  Transmission Date: 20100115
  Serious: Yes (Hospitalization)
  Sender: FDA-Public Use
  Company Number: JP-ASTRAZENECA-2009SE02520

PATIENT
  Sex: Female

DRUGS (15)
  1. ECARD [Suspect]
     Indication: HYPERTENSION
     Route: 048
     Dates: start: 20090403, end: 20090519
  2. CIBENOL [Suspect]
     Indication: ATRIAL FIBRILLATION
     Route: 048
     Dates: start: 20090108
  3. OMEPRAZOLE [Concomitant]
     Indication: EPIGASTRIC DISCOMFORT
     Route: 048
     Dates: start: 20090507
  4. MUCOSTA [Concomitant]
     Indication: GASTRITIS
     Route: 048
     Dates: start: 20080924, end: 20090506
  5. MUCOSTA [Concomitant]
     Route: 048
  6. SIGMART [Concomitant]
     Indication: ANGINA PECTORIS
     Route: 048
     Dates: start: 20090424
  7. ASPIRIN [Concomitant]
     Indication: ANGINA PECTORIS
     Route: 048
     Dates: start: 20081208
  8. ASPIRIN [Concomitant]
     Route: 048
     Dates: start: 20090128
  9. PLAVIX [Concomitant]
     Indication: ANGINA PECTORIS
     Route: 048
     Dates: start: 20081208
  10. PLAVIX [Concomitant]
     Route: 048
     Dates: start: 20090128
  11. ADALAT CC [Concomitant]
     Indication: HYPERTENSION
     Route: 048
     Dates: start: 20090310
  12. MAGNESIUM OXIDE [Concomitant]
     Indication: CONSTIPATION
     Route: 048
     Dates: start: 20090507
  13. MYSLEE [Concomitant]
     Indication: INSOMNIA
     Route: 048
     Dates: start: 20080117, end: 20080130
  14. MYSLEE [Concomitant]
     Route: 048
     Dates: start: 20080131
  15. GASTER D [Concomitant]
     Route: 048
     Dates: end: 20090506

REACTIONS (5)
  - DIZZINESS [None]
  - HAEMATOCRIT DECREASED [None]
  - HYPOGLYCAEMIA [None]
  - HYPONATRAEMIA [None]
  - RED BLOOD CELL COUNT DECREASED [None]
